FAERS Safety Report 7313147-7 (Version None)
Quarter: 2011Q1

REPORT INFORMATION
  Report Type: 
  Country: None (occurrence: None)
  Receive Date: 20110216
  Receipt Date: 20110216
  Transmission Date: 20110831
  Serious: Yes (Other)
  Sender: FDA-Public Use
  Company Number: None

PATIENT

DRUGS (1)
  1. LOVENOX [Suspect]
     Dosage: INJECTION
     Dates: start: 20110206

REACTIONS (1)
  - DEVICE MALFUNCTION [None]
